FAERS Safety Report 15996686 (Version 2)
Quarter: 2019Q2

REPORT INFORMATION
  Report Type: Spontaneous
  Country: KR (occurrence: KR)
  Receive Date: 20190222
  Receipt Date: 20190402
  Transmission Date: 20190711
  Serious: Yes (Other)
  Sender: FDA-Public Use
  Company Number: KR-ASTRAZENECA-2019SE27681

PATIENT
  Age: 48 Year
  Sex: Female

DRUGS (4)
  1. LYNPARZA [Suspect]
     Active Substance: OLAPARIB
     Dosage: FULL DOSE (8T TWO TIMES A DAY)
     Route: 048
     Dates: start: 201712, end: 201801
  2. LYNPARZA [Suspect]
     Active Substance: OLAPARIB
     Route: 048
     Dates: start: 201609, end: 201707
  3. LYNPARZA [Suspect]
     Active Substance: OLAPARIB
     Dosage: DOSE REDUCTION (4T TWO TIMES A DAY)
     Route: 048
     Dates: start: 201709
  4. LYNPARZA [Suspect]
     Active Substance: OLAPARIB
     Dosage: DOSE REDUCTION (4T TWO TIMES A DAY)
     Route: 048
     Dates: start: 201802, end: 201902

REACTIONS (2)
  - Neutropenia [Recovered/Resolved]
  - Pancytopenia [Recovered/Resolved]

NARRATIVE: CASE EVENT DATE: 201609
